FAERS Safety Report 5977687-5 (Version None)
Quarter: 2008Q4

REPORT INFORMATION
  Report Type: 
  Country: None (occurrence: None)
  Receive Date: 20081203
  Receipt Date: 20081120
  Transmission Date: 20090506
  Serious: Yes (Hospitalization)
  Sender: FDA-Public Use
  Company Number: AU-JNJCH-2008055864

PATIENT
  Sex: Female

DRUGS (2)
  1. CETIRIZINE HYDROCHLORIDE [Suspect]
     Indication: DRUG HYPERSENSITIVITY
     Dosage: TEXT:30 MG/NI
     Route: 048
  2. IRBESARTAN [Concomitant]
     Indication: BLOOD PRESSURE
     Route: 048

REACTIONS (3)
  - HYPOTENSION [None]
  - OVERDOSE [None]
  - PALPITATIONS [None]
